FAERS Safety Report 18701784 (Version 1)
Quarter: 2021Q1

REPORT INFORMATION
  Report Type: Report from Study
  Country: US (occurrence: US)
  Receive Date: 20210105
  Receipt Date: 20210105
  Transmission Date: 20210419
  Serious: No
  Sender: FDA-Public Use
  Company Number: US-IPSEN BIOPHARMACEUTICALS, INC.-2020-25745

PATIENT
  Age: 42 Year

DRUGS (1)
  1. DYSPORT [Suspect]
     Active Substance: ABOBOTULINUMTOXINA
     Indication: MUSCLE SPASTICITY
     Dosage: 400IU (FINGER FLEXORS: 50IU, WRIST FLEXORS: 50IU, ELBOW FLEXORS:150IU, SHOULDER MUSCLES: 150 IU)

REACTIONS (2)
  - Muscle spasticity [Unknown]
  - Therapeutic response shortened [Unknown]
